FAERS Safety Report 8443774 (Version 3)
Quarter: 2014Q2

REPORT INFORMATION
  Report Type: Report from Study
  Country: JP (occurrence: JP)
  Receive Date: 20120306
  Receipt Date: 20140529
  Transmission Date: 20141212
  Serious: Yes (Death, Hospitalization)
  Sender: FDA-Public Use
  Company Number: PHHY2012JP018195

PATIENT
  Age: 75 Year
  Sex: Male
  Weight: 68 kg

DRUGS (7)
  1. EXELON [Suspect]
     Indication: DEMENTIA ALZHEIMER^S TYPE
     Dosage: 4.5 MG, UNK
     Route: 062
     Dates: start: 20120210
  2. URINORM [Concomitant]
     Dosage: 1 DF, UNK
     Route: 048
  3. GOSHAJINKIGAN [Concomitant]
     Dosage: 5 G, UNK
     Route: 048
  4. NESINA [Concomitant]
     Dosage: 1 DF, UNK
     Route: 048
  5. URALYT-U [Concomitant]
     Route: 048
  6. NICHISTATE [Concomitant]
     Dosage: 1 DF, UNK
     Route: 048
  7. CALBLOCK [Concomitant]
     Dosage: 16 MG, UNK
     Route: 048

REACTIONS (7)
  - Cardiac arrest [Fatal]
  - Myocardial ischaemia [Fatal]
  - Influenza [Fatal]
  - Pyrexia [Unknown]
  - Headache [Recovering/Resolving]
  - Nausea [Recovering/Resolving]
  - Dehydration [Unknown]
